FAERS Safety Report 17083554 (Version 2)
Quarter: 2019Q4

REPORT INFORMATION
  Report Type: Spontaneous
  Country: GR (occurrence: GR)
  Receive Date: 20191127
  Receipt Date: 20191206
  Transmission Date: 20200122
  Serious: Yes (Other)
  Sender: FDA-Public Use
  Company Number: GR-ANIPHARMA-2019-GR-000014

PATIENT
  Age: 69 Year
  Sex: Female

DRUGS (16)
  1. BEVACIZUMAB. [Suspect]
     Active Substance: BEVACIZUMAB
     Dosage: UNKNOWN
     Route: 065
  2. CAPECITABINE. [Suspect]
     Active Substance: CAPECITABINE
     Dosage: UNKNOWN
     Route: 065
  3. DOXORUBICIN HYDROCHLORIDE. [Suspect]
     Active Substance: DOXORUBICIN HYDROCHLORIDE
     Dosage: UNKNOWN
     Route: 065
  4. TAMOXIFEN CITRATE. [Suspect]
     Active Substance: TAMOXIFEN CITRATE
     Dosage: UNKNOWN
     Route: 048
  5. CARBOPLATIN. [Suspect]
     Active Substance: CARBOPLATIN
     Dosage: UNKNOWN
     Route: 065
  6. AFINITOR [Suspect]
     Active Substance: EVEROLIMUS
     Dosage: UNKNOWN
     Route: 065
  7. DOCETAXEL. [Suspect]
     Active Substance: DOCETAXEL
     Dosage: UNKNOWN
     Route: 065
  8. EPIRUBICIN HYDROCHLORIDE. [Suspect]
     Active Substance: EPIRUBICIN HYDROCHLORIDE
     Dosage: UNKNOWN
     Route: 065
  9. CYCLOPHOSPHAMIDE. [Suspect]
     Active Substance: CYCLOPHOSPHAMIDE
     Dosage: UNKNOWN
     Route: 065
  10. EXEMESTANE. [Suspect]
     Active Substance: EXEMESTANE
     Dosage: UNKNOWN
     Route: 065
  11. GEMCITABINE HYDROCHLORIDE. [Suspect]
     Active Substance: GEMCITABINE HYDROCHLORIDE
     Dosage: UNKNOWN
     Route: 065
  12. ANASTROZOLE. [Suspect]
     Active Substance: ANASTROZOLE
     Indication: BREAST CANCER METASTATIC
     Dosage: UNKNOWN
     Route: 048
  13. ERIBULIN [Suspect]
     Active Substance: ERIBULIN
     Dosage: UNKNOWN
     Route: 065
  14. NAVELBINE [Suspect]
     Active Substance: VINORELBINE TARTRATE
     Dosage: UNKNOWN
     Route: 065
  15. FASLODEX [Suspect]
     Active Substance: FULVESTRANT
     Dosage: UNKNOWN
     Route: 030
  16. PACLITAXEL. [Suspect]
     Active Substance: PACLITAXEL
     Dosage: ONCE A WEEK / ABRAXANE
     Route: 065

REACTIONS (6)
  - Breast cancer recurrent [Unknown]
  - Second primary malignancy [Unknown]
  - Disease progression [Unknown]
  - Breast cancer metastatic [Unknown]
  - Malignant neoplasm progression [Unknown]
  - Acute lymphocytic leukaemia [Unknown]
